FAERS Safety Report 8735060 (Version 6)
Quarter: 2013Q1

REPORT INFORMATION
  Report Type: Report from Study
  Country: JP (occurrence: JP)
  Receive Date: 20120821
  Receipt Date: 20130208
  Transmission Date: 20140127
  Serious: Yes (Death, Other)
  Sender: FDA-Public Use
  Company Number: JP-009507513-1208JPN007372

PATIENT
  Age: 71 Year
  Sex: Female
  Weight: 80 kg

DRUGS (19)
  1. PEGINTRON [Suspect]
     Indication: CHRONIC HEPATITIS C
     Dosage: 1.0 MICROGRAM PER KILOGRAM, QW
     Route: 058
     Dates: start: 20120224
  2. PEGINTRON [Suspect]
     Dosage: 80 MICROGRAM, QW
     Route: 058
     Dates: start: 20120425, end: 20120516
  3. PEGINTRON [Suspect]
     Dosage: 80 MICROGRAM, QW
     Route: 058
     Dates: start: 20120530, end: 20120530
  4. REBETOL [Suspect]
     Indication: CHRONIC HEPATITIS C
     Dosage: 600 MG, QD
     Route: 048
     Dates: start: 20120224, end: 20120424
  5. REBETOL [Suspect]
     Dosage: 400 MG, QD
     Route: 048
     Dates: start: 20120425, end: 20120515
  6. REBETOL [Suspect]
     Dosage: 200 MG, QD
     Route: 048
     Dates: start: 20120516, end: 20120601
  7. TELAVIC [Suspect]
     Indication: CHRONIC HEPATITIS C
     Dosage: 1.5 G, QD
     Route: 048
     Dates: start: 20120224, end: 20120508
  8. TELAVIC [Suspect]
     Dosage: 1 G, QD
     Route: 048
     Dates: start: 20120509, end: 20120516
  9. TELAVIC [Suspect]
     Dosage: 500 MG, QD
     Route: 048
     Dates: start: 20120516, end: 20120517
  10. BFLUID [Concomitant]
     Dosage: 500 ML, QD
     Route: 042
     Dates: start: 20120418, end: 20120418
  11. BFLUID [Concomitant]
     Dosage: 1000 ML, QD
     Route: 042
     Dates: start: 20120419, end: 20120425
  12. ISOTONIC SODIUM CHLORIDE SOLUTION PL FUSO [Concomitant]
     Dosage: 10 ML, QD
     Route: 042
     Dates: start: 20120418, end: 20120425
  13. ISOTONIC SODIUM CHLORIDE SOLUTION PL FUSO [Concomitant]
     Dosage: 10 ML, QD
     Route: 042
     Dates: start: 20120523, end: 20120525
  14. ISOTONIC SODIUM CHLORIDE SOLUTION PL FUSO [Concomitant]
     Dosage: 10 ML, QD
     Route: 042
     Dates: start: 20120608, end: 20120613
  15. ISOTONIC SODIUM CHLORIDE SOLUTION PL FUSO [Concomitant]
     Dosage: 0.9% 20 ML/TIME,QD
     Route: 042
     Dates: start: 20120703, end: 20120703
  16. ISOTONIC SODIUM CHLORIDE SOLUTION PL FUSO [Concomitant]
     Dosage: 0.9% 20 ML/TIME,QD
     Route: 042
     Dates: start: 20120704, end: 20120704
  17. ISOTONIC SODIUM CHLORIDE SOLUTION PL FUSO [Concomitant]
     Dosage: 0.9% 20 ML/TIME
     Route: 042
     Dates: start: 20120705, end: 20120705
  18. NORVASC [Concomitant]
     Indication: HYPERTENSION
     Dosage: 5 MG, QD, FORMULATION : POR
     Route: 048
     Dates: end: 20120401
  19. BLOPRESS [Concomitant]
     Indication: HYPERTENSION
     Dosage: 2 MG, QD, FORMULATION : POR
     Route: 048
     Dates: end: 20120401

REACTIONS (4)
  - Acute hepatic failure [Fatal]
  - Decreased appetite [Not Recovered/Not Resolved]
  - Haemoglobin decreased [Not Recovered/Not Resolved]
  - Retinopathy [Unknown]
